FAERS Safety Report 6562688-9 (Version None)
Quarter: 2010Q1

REPORT INFORMATION
  Report Type: 
  Country: None (occurrence: None)
  Receive Date: 20100130
  Receipt Date: 20091209
  Transmission Date: 20100710
  Serious: No
  Sender: FDA-Public Use
  Company Number: US-ABBOTT-09P-163-0609326-00

PATIENT
  Sex: Female
  Weight: 70.37 kg

DRUGS (2)
  1. HUMIRA [Suspect]
     Indication: CROHN'S DISEASE
     Dosage: DAY 1
     Dates: start: 20091111
  2. ATENOLOL [Concomitant]
     Indication: HYPERTENSION
     Dates: start: 20040101

REACTIONS (4)
  - BLOOD PRESSURE INCREASED [None]
  - GASTROOESOPHAGEAL REFLUX DISEASE [None]
  - INFLUENZA LIKE ILLNESS [None]
  - PALPITATIONS [None]
